FAERS Safety Report 5519401-3 (Version None)
Quarter: 2007Q4

REPORT INFORMATION
  Report Type: 
  Country: None (occurrence: None)
  Receive Date: 20071116
  Receipt Date: 20071112
  Transmission Date: 20080405
  Serious: Yes (Death)
  Sender: FDA-Public Use
  Company Number: PHBS2007JP12865

PATIENT
  Age: 62 Year
  Sex: Female
  Weight: 43 kg

DRUGS (9)
  1. DOPACOL [Suspect]
     Indication: PARKINSON'S DISEASE
     Dosage: 4.5 DF/D
     Route: 048
     Dates: start: 20020405, end: 20021107
  2. DOPACOL [Suspect]
     Dosage: 5 DF/D
     Route: 048
     Dates: start: 20021108, end: 20040114
  3. DOPACOL [Suspect]
     Dosage: 5.5 DF/D
     Route: 048
     Dates: start: 20040115, end: 20041021
  4. DOPACOL [Suspect]
     Dosage: 6.5 DF/D
     Route: 048
     Dates: start: 20041022, end: 20060105
  5. DOPACOL [Suspect]
     Dosage: 8 DF/D
     Route: 048
     Dates: start: 20060106, end: 20070419
  6. DOPACOL [Suspect]
     Dosage: 7 DF/D
     Route: 048
     Dates: start: 20070420, end: 20070705
  7. DOPACOL [Suspect]
     Dosage: 6 DF/D
     Route: 048
     Dates: start: 20070706
  8. FERROMIA [Concomitant]
     Indication: IRON DEFICIENCY ANAEMIA
     Dosage: 50 MG/D
     Route: 048
     Dates: start: 20070323
  9. COMTAN [Suspect]
     Indication: DRUG EFFECT DECREASED
     Dosage: 300 MG/DAY
     Route: 048
     Dates: start: 20070706

REACTIONS (2)
  - CEREBRAL HAEMORRHAGE [None]
  - HYPERTENSION [None]
